FAERS Safety Report 18013497 (Version 4)
Quarter: 2020Q3

REPORT INFORMATION
  Report Type: Spontaneous
  Country: US (occurrence: US)
  Receive Date: 20200713
  Receipt Date: 20200910
  Transmission Date: 20201103
  Serious: No
  Sender: FDA-Public Use
  Company Number: US-GLAXOSMITHKLINE-US2020AMR127589

PATIENT
  Sex: Female

DRUGS (2)
  1. ZEJULA [Suspect]
     Active Substance: NIRAPARIB
     Indication: FALLOPIAN TUBE CANCER
     Dosage: 100 MG, QD
     Route: 048
     Dates: start: 20200622
  2. ZEJULA [Suspect]
     Active Substance: NIRAPARIB
     Dosage: 100 MG, QD
     Route: 048
     Dates: end: 20200824

REACTIONS (8)
  - Tinnitus [Unknown]
  - Constipation [Unknown]
  - Magnetic resonance imaging abnormal [Unknown]
  - Off label use [Unknown]
  - Neck pain [Unknown]
  - Arthralgia [Unknown]
  - Head discomfort [Unknown]
  - Carbohydrate antigen 125 increased [Unknown]
